FAERS Safety Report 16941883 (Version 2)
Quarter: 2019Q4

REPORT INFORMATION
  Report Type: Spontaneous
  Country: JP (occurrence: JP)
  Receive Date: 20191021
  Receipt Date: 20191205
  Transmission Date: 20200122
  Serious: Yes (Hospitalization)
  Sender: FDA-Public Use
  Company Number: JP-JNJFOC-20191018393

PATIENT
  Age: 60 Year
  Sex: Male
  Weight: 45.9 kg

DRUGS (2)
  1. XEPLION [Suspect]
     Active Substance: PALIPERIDONE PALMITATE
     Indication: SCHIZOPHRENIA
     Route: 030
     Dates: start: 20190425, end: 20190718
  2. OLANZAPINE. [Concomitant]
     Active Substance: OLANZAPINE
     Route: 048

REACTIONS (3)
  - Aplastic anaemia [Recovering/Resolving]
  - Pericarditis [Recovering/Resolving]
  - Pelvic venous thrombosis [Unknown]

NARRATIVE: CASE EVENT DATE: 20190720
